FAERS Safety Report 21726148 (Version 1)
Quarter: 2022Q4

REPORT INFORMATION
  Report Type: Spontaneous
  Country: US (occurrence: US)
  Receive Date: 20221214
  Receipt Date: 20221214
  Transmission Date: 20230112
  Serious: No
  Sender: FDA-Public Use
  Company Number: US-NOVEN PHARMACEUTICALS, INC.-2022-NOV-US000125

PATIENT
  Sex: Female

DRUGS (2)
  1. ESTRADIOL [Suspect]
     Active Substance: ESTRADIOL
     Indication: Menopause
     Dosage: 0.1 MG, 1 PATCH EVERY 3-4 DAYS
     Route: 062
  2. ESTRADIOL [Suspect]
     Active Substance: ESTRADIOL
     Indication: Osteoporosis

REACTIONS (6)
  - Reaction to excipient [Unknown]
  - Application site irritation [Unknown]
  - Application site rash [Unknown]
  - Application site erythema [Unknown]
  - Application site pruritus [Unknown]
  - Application site swelling [Unknown]
